FAERS Safety Report 5362236-5 (Version None)
Quarter: 2007Q2

REPORT INFORMATION
  Report Type: 
  Country: None (occurrence: None)
  Receive Date: 20070618
  Receipt Date: 20070618
  Transmission Date: 20071010
  Serious: No
  Sender: FDA-Public Use
  Company Number: None

PATIENT
  Age: 48 Year
  Sex: Male

DRUGS (1)
  1. PRIALT [Suspect]
     Dosage: INJECTABLE

REACTIONS (6)
  - CONDITION AGGRAVATED [None]
  - DEVICE BREAKAGE [None]
  - INFUSION RELATED REACTION [None]
  - MEDICATION ERROR [None]
  - PSYCHOTIC DISORDER [None]
  - SUICIDE ATTEMPT [None]
